FAERS Safety Report 19306114 (Version 1)
Quarter: 2021Q2

REPORT INFORMATION
  Report Type: Spontaneous
  Country: CA (occurrence: CA)
  Receive Date: 20210526
  Receipt Date: 20210526
  Transmission Date: 20210717
  Serious: Yes (Hospitalization)
  Sender: FDA-Public Use
  Company Number: CA-ASTRAZENECA-2021A450010

PATIENT
  Age: 86 Year
  Sex: Female
  Weight: 81 kg

DRUGS (21)
  1. ONGLYZA [Suspect]
     Active Substance: SAXAGLIPTIN HYDROCHLORIDE
     Indication: DIABETES MELLITUS
     Route: 048
  2. ASA [Concomitant]
     Active Substance: ASPIRIN
  3. VALSARTAN. [Concomitant]
     Active Substance: VALSARTAN
  4. ATORVASTATIN [Concomitant]
     Active Substance: ATORVASTATIN
  5. DOCUSATE SODIUM. [Concomitant]
     Active Substance: DOCUSATE SODIUM
  6. MOMETASONE FUROATE. [Concomitant]
     Active Substance: MOMETASONE FUROATE
  7. SOLIFENACIN [Concomitant]
     Active Substance: SOLIFENACIN
  8. ISOSORBIDE MONONITRATE. [Concomitant]
     Active Substance: ISOSORBIDE MONONITRATE
  9. ALENDRONATE [Concomitant]
     Active Substance: ALENDRONATE SODIUM
  10. CHOLECALCIFEROL [Concomitant]
     Active Substance: CHOLECALCIFEROL
  11. PANTOPRAZOLE [Concomitant]
     Active Substance: PANTOPRAZOLE
  12. CALCIUM [Concomitant]
     Active Substance: CALCIUM
  13. BISOPROLOL [Concomitant]
     Active Substance: BISOPROLOL
  14. LEVEMIR [Concomitant]
     Active Substance: INSULIN DETEMIR
     Route: 058
  15. GLICLAZIDE [Concomitant]
     Active Substance: GLICLAZIDE
  16. MOXIFLOXACIN. [Concomitant]
     Active Substance: MOXIFLOXACIN
  17. INDAPAMIDE. [Concomitant]
     Active Substance: INDAPAMIDE
  18. JUBLIA [Concomitant]
     Active Substance: EFINACONAZOLE
  19. ACETAMINOPHEN. [Concomitant]
     Active Substance: ACETAMINOPHEN
  20. EZETIMIBE. [Concomitant]
     Active Substance: EZETIMIBE
  21. METFORMIN [Concomitant]
     Active Substance: METFORMIN HYDROCHLORIDE

REACTIONS (3)
  - Abdominal pain [Unknown]
  - Subacute pancreatitis [Unknown]
  - Lipase increased [Unknown]
